FAERS Safety Report 7683190-7 (Version None)
Quarter: 2011Q3

REPORT INFORMATION
  Report Type: 
  Country: None (occurrence: None)
  Receive Date: 20110815
  Receipt Date: 20110812
  Transmission Date: 20111222
  Serious: No
  Sender: FDA-Public Use
  Company Number: US-PFIZER INC-2011186323

PATIENT
  Sex: Female
  Weight: 68.027 kg

DRUGS (8)
  1. TYLENOL-500 [Suspect]
     Indication: BACK PAIN
     Dosage: UNK
     Dates: start: 20100101
  2. ENALAPRIL [Concomitant]
     Indication: HYPERTENSION
     Dosage: 10/25 MG, UNK
  3. LIPITOR [Concomitant]
     Dosage: 80 MG, UNK
  4. PLAVIX [Concomitant]
     Indication: CEREBROVASCULAR ACCIDENT
     Dosage: 75 MG, UNK
  5. VITAMIN TAB [Concomitant]
     Dosage: UNK
  6. ADVIL LIQUI-GELS [Suspect]
     Indication: BACK PAIN
     Dosage: 6 A DAY
     Dates: start: 20110601
  7. TYLENOL-500 [Suspect]
     Indication: ARTHRITIS
  8. ADVIL LIQUI-GELS [Suspect]
     Indication: ARTHRITIS

REACTIONS (4)
  - RASH [None]
  - DRUG INEFFECTIVE [None]
  - HYPERSENSITIVITY [None]
  - PRURITUS [None]
